FAERS Safety Report 4355753-8 (Version None)
Quarter: 2004Q2

REPORT INFORMATION
  Report Type: 
  Country: None (occurrence: None)
  Receive Date: 20040510
  Receipt Date: 20040510
  Transmission Date: 20050107
  Serious: Yes (Life-Threatening)
  Sender: FDA-Public Use
  Company Number: None

PATIENT
  Age: 84 Year
  Sex: Female
  Weight: 71.6683 kg

DRUGS (2)
  1. CETUXIMAB [Suspect]
     Indication: COLON CANCER METASTATIC
     Dosage: 720 MG IV
     Route: 042
     Dates: start: 20040428
  2. DIPHENHYDRAMINE HCL [Suspect]
     Indication: COLON CANCER METASTATIC
     Dosage: 50 MG IV
     Route: 042
     Dates: start: 20040428

REACTIONS (3)
  - CARDIO-RESPIRATORY ARREST [None]
  - COMA [None]
  - FEELING ABNORMAL [None]
